FAERS Safety Report 5006535-5 (Version None)
Quarter: 2006Q2

REPORT INFORMATION
  Report Type: 
  Country: None (occurrence: None)
  Receive Date: 20060516
  Receipt Date: 20060427
  Transmission Date: 20061013
  Serious: Yes (Hospitalization)
  Sender: FDA-Public Use
  Company Number: FR200604004607

PATIENT
  Age: 79 Year
  Sex: Female

DRUGS (12)
  1. FORTEO [Suspect]
     Indication: OSTEOPOROSIS
     Dosage: 20 UG, DAILY (1/D), SUBCUTANEOUS
     Route: 058
     Dates: start: 20060224
  2. FORTEO [Concomitant]
  3. CACIT D3 (CALCIUM CARBONATE, COLECALCIFEROL) BAG, IV [Concomitant]
  4. NITRIDERM TTS (GLYCERYL TRINITRATE) PATCH [Concomitant]
  5. IMOVANE (ZOPICLONE) [Concomitant]
  6. OMEPRAZOLE [Concomitant]
  7. CORDARONE [Concomitant]
  8. FORLAX (MACROGOL) [Concomitant]
  9. XANAX [Concomitant]
  10. TOPALGIC (TRAMDOL HYDROCHLORIDE) [Concomitant]
  11. EFFEXOR [Concomitant]
  12. ACETAMINOPHEN [Concomitant]

REACTIONS (4)
  - FALL [None]
  - FEMORAL NECK FRACTURE [None]
  - HEADACHE [None]
  - HYPERTENSION [None]
